FAERS Safety Report 7102075-8 (Version None)
Quarter: 2010Q4

REPORT INFORMATION
  Report Type: 
  Country: None (occurrence: None)
  Receive Date: 20101115
  Receipt Date: 20101104
  Transmission Date: 20110411
  Serious: Yes (Hospitalization)
  Sender: FDA-Public Use
  Company Number: US-BIOGENIDEC-2010BI009539

PATIENT
  Age: 67 Year
  Sex: Female
  Weight: 113 kg

DRUGS (13)
  1. TYSABRI [Suspect]
     Indication: MULTIPLE SCLEROSIS
     Route: 042
     Dates: start: 20070323, end: 20100127
  2. GABAPENTIN [Concomitant]
  3. MIRAPEX [Concomitant]
  4. CYMBALTA [Concomitant]
  5. PRIMIDONE [Concomitant]
  6. ALPRAZOLAM [Concomitant]
  7. ADDERALL 10 [Concomitant]
  8. VESICARE [Concomitant]
  9. ASPIRIN [Concomitant]
  10. LORATADINE [Concomitant]
  11. METFORMIN HCL [Concomitant]
  12. BENICAR [Concomitant]
  13. LOVASTATIN [Concomitant]

REACTIONS (8)
  - ARTHRALGIA [None]
  - FALL [None]
  - FOOT FRACTURE [None]
  - LUNG CANCER METASTATIC [None]
  - METASTASES TO BONE [None]
  - METASTASES TO LIVER [None]
  - PAIN IN EXTREMITY [None]
  - TACHYCARDIA [None]
